FAERS Safety Report 13706047 (Version 1)
Quarter: 2017Q2

REPORT INFORMATION
  Report Type: Spontaneous
  Country: US (occurrence: US)
  Receive Date: 20170630
  Receipt Date: 20170630
  Transmission Date: 20170830
  Serious: Yes (Hospitalization)
  Sender: FDA-Public Use
  Company Number: US-PFIZER INC-2017282826

PATIENT
  Age: 67 Year
  Sex: Female
  Weight: 113 kg

DRUGS (1)
  1. IBRANCE [Suspect]
     Active Substance: PALBOCICLIB
     Indication: BREAST CANCER METASTATIC
     Dosage: UNK
     Dates: start: 20170502

REACTIONS (11)
  - Pyrexia [Unknown]
  - Pneumonia [Recovering/Resolving]
  - Dry mouth [Unknown]
  - Hypersomnia [Unknown]
  - Insomnia [Unknown]
  - Speech disorder [Unknown]
  - Cough [Unknown]
  - Memory impairment [Unknown]
  - Lip dry [Unknown]
  - Confusional state [Unknown]
  - Fatigue [Unknown]

NARRATIVE: CASE EVENT DATE: 20170623
